FAERS Safety Report 4381581-3 (Version None)
Quarter: 2004Q2

REPORT INFORMATION
  Report Type: 
  Country: None (occurrence: None)
  Receive Date: 20040615
  Receipt Date: 20040608
  Transmission Date: 20050107
  Serious: Yes (Hospitalization, Other)
  Sender: FDA-Public Use
  Company Number: 2004208390US

PATIENT
  Age: 84 Year
  Sex: Female
  Weight: 54.4 kg

DRUGS (4)
  1. CELEBREX [Suspect]
     Indication: RHEUMATOID ARTHRITIS
     Dosage: 200 MG, BID
     Dates: end: 20031208
  2. NEXIUM [Concomitant]
  3. MIACALCIN [Concomitant]
  4. EVISTA [Concomitant]

REACTIONS (1)
  - CORONARY ARTERY SURGERY [None]
